FAERS Safety Report 20334671 (Version 1)
Quarter: 2022Q1

REPORT INFORMATION
  Report Type: Report from Study
  Country: US (occurrence: None)
  Receive Date: 20220114
  Receipt Date: 20220114
  Transmission Date: 20220423
  Serious: Yes (Hospitalization)
  Sender: FDA-Public Use
  Company Number: US-ROCHE-2909197

PATIENT
  Age: 74 Year
  Sex: Female
  Weight: 66 kg

DRUGS (15)
  1. ATEZOLIZUMAB [Suspect]
     Active Substance: ATEZOLIZUMAB
     Indication: Ovarian cancer
     Dosage: CYCLE: 28 DAYS?MOST RECENT DOSE OF ATEZOLIZUMAB PRIOR TO SERIOUS ADVERSE EVENT ONSET ON 28/JUN/2021
     Route: 041
     Dates: start: 20210614
  2. BEVACIZUMAB [Suspect]
     Active Substance: BEVACIZUMAB
     Indication: Ovarian cancer
     Dosage: CYCLE: 28 DAYS?MOST RECENT DOSE OF BEVACIZUMAB PRIOR TO SERIOUS ADVERSE EVENT ONSET ON 28/JUN/2021
     Route: 042
     Dates: start: 20210614
  3. DOXORUBICIN [Suspect]
     Active Substance: DOXORUBICIN
     Indication: Ovarian cancer
     Dosage: CYCLE: 28 DAYS?MOST RECENT DOSE OF PEGYLATED LIPOSOMAL DOXORUBICIN PRIOR TO SERIOUS ADVERSE EVENT ON
     Route: 042
     Dates: start: 20210614
  4. ASPIRIN [Concomitant]
     Active Substance: ASPIRIN
  5. FIORICET [Concomitant]
     Active Substance: ACETAMINOPHEN\BUTALBITAL\CAFFEINE
  6. CYANOCOBALAMIN [Concomitant]
     Active Substance: CYANOCOBALAMIN
  7. VALIUM [Concomitant]
     Active Substance: DIAZEPAM
  8. DOK [Concomitant]
     Active Substance: DOCUSATE SODIUM
  9. KEPPRA [Concomitant]
     Active Substance: LEVETIRACETAM
     Indication: Seizure
  10. MAGNESIUM HYDROXIDE [Concomitant]
     Active Substance: MAGNESIUM HYDROXIDE
  11. MELATONIN [Concomitant]
     Active Substance: MELATONIN
  12. TAPAZOLE [Concomitant]
     Active Substance: METHIMAZOLE
  13. DELTASONE [Concomitant]
     Active Substance: PREDNISONE
  14. INDERAL [Concomitant]
     Active Substance: PROPRANOLOL HYDROCHLORIDE
  15. CARMOL [UREA] [Concomitant]

REACTIONS (1)
  - Cerebrovascular accident [Recovered/Resolved]

NARRATIVE: CASE EVENT DATE: 20210806
